FAERS Safety Report 5435773-2 (Version None)
Quarter: 2007Q3

REPORT INFORMATION
  Report Type: 
  Country: None (occurrence: None)
  Receive Date: 20070831
  Receipt Date: 20070820
  Transmission Date: 20080115
  Serious: Yes (Death)
  Sender: FDA-Public Use
  Company Number: B0483703A

PATIENT
  Age: 21 Year
  Sex: Male

DRUGS (2)
  1. DIPHENHYDRAMINE HCL [Suspect]
     Route: 065
  2. PHENCYCLIDINE [Suspect]
     Route: 065

REACTIONS (5)
  - COMPLETED SUICIDE [None]
  - DRUG TOXICITY [None]
  - PULMONARY CONGESTION [None]
  - PULMONARY OEDEMA [None]
  - SHOCK [None]
